FAERS Safety Report 9242023 (Version 3)
Quarter: 2013Q2

REPORT INFORMATION
  Report Type: Report from Study
  Country: DE (occurrence: DE)
  Receive Date: 20130419
  Receipt Date: 20130515
  Transmission Date: 20140414
  Serious: Yes (Hospitalization)
  Sender: FDA-Public Use
  Company Number: DE-ROCHE-1201929

PATIENT
  Age: 73 Year
  Sex: Male
  Weight: 78 kg

DRUGS (5)
  1. BEVACIZUMAB [Suspect]
     Indication: COLON CANCER
     Dosage: LAST DOSE PRIOR TO SAE: 05/FEB/2013
     Route: 042
     Dates: start: 20110811, end: 20130311
  2. OXALIPLATIN [Suspect]
     Indication: COLON CANCER
     Dosage: LAST DOSE PRIOR TO SAE: 28/DEC/2011
     Route: 042
     Dates: start: 20110811
  3. FLUOROURACIL [Suspect]
     Indication: COLON CANCER
     Dosage: LAST DOSE PRIOR TO SAE: 06/FEB/2013
     Route: 042
     Dates: start: 20110811, end: 20130311
  4. FOLINIC ACID [Suspect]
     Indication: COLON CANCER
     Dosage: LAST DOSE PRIOR TO SAE: 06/FEB/2013
     Route: 042
     Dates: start: 20110811, end: 20130311
  5. GLUCOPHAGE [Concomitant]
     Route: 065
     Dates: start: 2007

REACTIONS (1)
  - Cholestasis [Recovered/Resolved]
